FAERS Safety Report 20629380 (Version 2)
Quarter: 2025Q1

REPORT INFORMATION
  Report Type: Spontaneous
  Country: GR (occurrence: GR)
  Receive Date: 20220323
  Receipt Date: 20250209
  Transmission Date: 20250408
  Serious: Yes (Hospitalization, Other)
  Sender: ROCHE
  Company Number: GR-ROCHE-3051015

PATIENT
  Age: 56 Year
  Sex: Male

DRUGS (2)
  1. BEVACIZUMAB [Suspect]
     Active Substance: BEVACIZUMAB
     Indication: Product used for unknown indication
     Route: 065
  2. ATEZOLIZUMAB [Suspect]
     Active Substance: ATEZOLIZUMAB
     Indication: Product used for unknown indication
     Route: 065

REACTIONS (12)
  - Transaminases increased [Unknown]
  - Hepatitis B reactivation [Unknown]
  - Pyrexia [Unknown]
  - Abdominal pain [Unknown]
  - Diarrhoea [Unknown]
  - Appendicitis [Unknown]
  - Hepatic failure [Unknown]
  - Melaena [Unknown]
  - Varices oesophageal [Unknown]
  - Duodenal ulcer haemorrhage [Unknown]
  - Ascites [Unknown]
  - Effusion [Unknown]
